FAERS Safety Report 8559113-5 (Version None)
Quarter: 2012Q3

REPORT INFORMATION
  Report Type: 
  Country: None (occurrence: None)
  Receive Date: 20120802
  Receipt Date: 20120720
  Transmission Date: 20120928
  Serious: No
  Sender: FDA-Public Use
  Company Number: US-BIOGENIDEC-2012BI027294

PATIENT
  Age: 57 Year
  Sex: Female

DRUGS (3)
  1. AVONEX [Suspect]
     Indication: MULTIPLE SCLEROSIS
     Route: 030
     Dates: start: 19950102, end: 20081006
  2. AVONEX [Suspect]
     Route: 030
     Dates: start: 19960701, end: 20071031
  3. AVONEX [Suspect]
     Route: 030
     Dates: start: 20090113

REACTIONS (1)
  - DRUG DOSE OMISSION [None]
